FAERS Safety Report 14413943 (Version 1)
Quarter: 2018Q1

REPORT INFORMATION
  Report Type: Spontaneous
  Country: US (occurrence: US)
  Receive Date: 20180118
  Receipt Date: 20180118
  Transmission Date: 20180509
  Serious: No
  Sender: FDA-Public Use
  Company Number: None

PATIENT
  Age: 35 Year
  Sex: Female

DRUGS (1)
  1. BOTOX [Suspect]
     Active Substance: ONABOTULINUMTOXINA
     Dosage: BOTOX 200 UNITS EVERY 3 MONTH IM
     Route: 030

REACTIONS (4)
  - Therapeutic response shortened [None]
  - Muscle disorder [None]
  - Fatigue [None]
  - Pain in jaw [None]

NARRATIVE: CASE EVENT DATE: 20171010
